FAERS Safety Report 24237812 (Version 3)
Quarter: 2024Q4

REPORT INFORMATION
  Report Type: Report from Study
  Country: US (occurrence: US)
  Receive Date: 20240822
  Receipt Date: 20241002
  Transmission Date: 20250115
  Serious: Yes (Other)
  Sender: ALEXION PHARMACEUTICALS
  Company Number: US-AstraZeneca-CH-00687787A

PATIENT

DRUGS (12)
  1. STRENSIQ [Suspect]
     Active Substance: ASFOTASE ALFA
     Indication: Hypophosphatasia
     Dosage: UNK
  2. STRENSIQ [Suspect]
     Active Substance: ASFOTASE ALFA
     Dosage: UNK
  3. STRENSIQ [Suspect]
     Active Substance: ASFOTASE ALFA
     Dosage: UNK
  4. STRENSIQ [Suspect]
     Active Substance: ASFOTASE ALFA
     Dosage: UNK
  5. STRENSIQ [Suspect]
     Active Substance: ASFOTASE ALFA
     Dosage: 60 MILLILITER TWO DOSES, TIW
     Route: 065
  6. STRENSIQ [Suspect]
     Active Substance: ASFOTASE ALFA
     Dosage: 60 MILLILITER TWO DOSES, TIW
  7. STRENSIQ [Suspect]
     Active Substance: ASFOTASE ALFA
     Dosage: 60 MILLILITER TWO DOSES, TIW
     Route: 065
  8. STRENSIQ [Suspect]
     Active Substance: ASFOTASE ALFA
     Dosage: 60 MILLILITER TWO DOSES, TIW
  9. STRENSIQ [Suspect]
     Active Substance: ASFOTASE ALFA
     Dosage: 70 MILLILITER TWO DOSES, TIW
     Route: 065
  10. STRENSIQ [Suspect]
     Active Substance: ASFOTASE ALFA
     Dosage: 70 MILLILITER TWO DOSES, TIW
  11. STRENSIQ [Suspect]
     Active Substance: ASFOTASE ALFA
     Dosage: 70 MILLILITER TWO DOSES, TIW
     Route: 065
  12. STRENSIQ [Suspect]
     Active Substance: ASFOTASE ALFA
     Dosage: 70 MILLILITER TWO DOSES, TIW

REACTIONS (4)
  - Neuropathy peripheral [Recovered/Resolved]
  - Nausea [Recovered/Resolved]
  - Fatigue [Recovered/Resolved]
  - Arthralgia [Recovered/Resolved]
